FAERS Safety Report 15402041 (Version 1)
Quarter: 2018Q3

REPORT INFORMATION
  Report Type: Spontaneous
  Country: US (occurrence: US)
  Receive Date: 20180915
  Receipt Date: 20180915
  Transmission Date: 20181010
  Serious: Yes (Life-Threatening)
  Sender: FDA-Public Use
  Company Number: None

PATIENT
  Age: 60 Year
  Sex: Female
  Weight: 94.5 kg

DRUGS (1)
  1. NP THYROID [Suspect]
     Active Substance: LEVOTHYROXINE\LIOTHYRONINE
     Indication: HYPOTHYROIDISM
     Dosage: ?          QUANTITY:3 DF DOSAGE FORM;?
     Route: 048
     Dates: start: 20180601, end: 20180904

REACTIONS (12)
  - Atrial fibrillation [None]
  - Heart rate irregular [None]
  - Palpitations [None]
  - Dyspepsia [None]
  - Pain [None]
  - Irritability [None]
  - Dizziness [None]
  - Exercise tolerance decreased [None]
  - Nausea [None]
  - Dyspnoea [None]
  - Fatigue [None]
  - Decreased appetite [None]

NARRATIVE: CASE EVENT DATE: 20180904
